FAERS Safety Report 18054698 (Version 1)
Quarter: 2020Q3

REPORT INFORMATION
  Report Type: Spontaneous
  Country: US (occurrence: US)
  Receive Date: 20200722
  Receipt Date: 20200722
  Transmission Date: 20201103
  Serious: No
  Sender: FDA-Public Use
  Company Number: US-SA-2020SA189507

PATIENT

DRUGS (2)
  1. PREVACID [Concomitant]
     Active Substance: LANSOPRAZOLE
  2. ZANTAC 150 (RANITIDINE HYDROCHLORIDE) [Suspect]
     Active Substance: RANITIDINE HYDROCHLORIDE
     Indication: GASTROINTESTINAL DISORDER
     Dosage: DRUG STRUCTURE DOSAGE :   NA  DRUG INTERVAL DOSAGE :   NA  DRUG TREATMENT DURATION:  NA

REACTIONS (3)
  - Abdominal discomfort [Unknown]
  - Pain [Unknown]
  - Expired product administered [Unknown]

NARRATIVE: CASE EVENT DATE: 202007
